FAERS Safety Report 22531546 (Version 2)
Quarter: 2023Q2

REPORT INFORMATION
  Report Type: Report from Study
  Country: EG (occurrence: EG)
  Receive Date: 20230607
  Receipt Date: 20230614
  Transmission Date: 20230722
  Serious: Yes (Other)
  Sender: FDA-Public Use
  Company Number: EG-002147023-NVSC2023EG126380

PATIENT
  Age: 5 Year
  Sex: Female

DRUGS (4)
  1. OMNITROPE [Suspect]
     Active Substance: SOMATROPIN
     Indication: Growth hormone deficiency
     Dosage: 0.4 MG RAISED TO 0.5 DUE TO NORMAL GROWTH
     Route: 058
     Dates: start: 202202
  2. VIDROP [Concomitant]
     Indication: Supplementation therapy
     Dosage: 1 DRP, QD
     Route: 048
     Dates: start: 20230201
  3. HYDROFERRIN [Concomitant]
     Indication: Supplementation therapy
     Dosage: UNK, QD (ONE SPOON DAILY)
     Route: 065
     Dates: start: 20230201
  4. ZINC [Concomitant]
     Active Substance: ZINC
     Indication: Supplementation therapy
     Dosage: UNK, QD (ONE SPOON)
     Route: 065
     Dates: start: 202206, end: 20230201

REACTIONS (8)
  - Injection site swelling [Not Recovered/Not Resolved]
  - Vomiting [Recovered/Resolved]
  - Poor quality device used [Not Recovered/Not Resolved]
  - Product preparation error [Not Recovered/Not Resolved]
  - Multiple use of single-use product [Not Recovered/Not Resolved]
  - Device use issue [Not Recovered/Not Resolved]
  - Device malfunction [Unknown]
  - Wrong technique in product usage process [Not Recovered/Not Resolved]

NARRATIVE: CASE EVENT DATE: 20220201
